FAERS Safety Report 6478074-6 (Version None)
Quarter: 2009Q4

REPORT INFORMATION
  Report Type: 
  Country: None (occurrence: None)
  Receive Date: 20091207
  Receipt Date: 20091124
  Transmission Date: 20100525
  Serious: Yes (Other)
  Sender: FDA-Public Use
  Company Number: DE-MERCK-0912DEU00014

PATIENT
  Age: 64 Year
  Sex: Male

DRUGS (8)
  1. CANCIDAS [Suspect]
     Indication: BRONCHOPULMONARY ASPERGILLOSIS
     Route: 042
  2. CANCIDAS [Suspect]
     Route: 041
  3. CYCLOSPORINE [Suspect]
     Indication: IMMUNOSUPPRESSION
     Route: 065
  4. MYCOPHENOLATE MOFETIL [Suspect]
     Indication: IMMUNOSUPPRESSION
     Route: 065
  5. CIPROFLOXACIN [Concomitant]
     Indication: ANTIBIOTIC PROPHYLAXIS
     Route: 065
  6. VORICONAZOLE [Suspect]
     Indication: ANTIFUNGAL PROPHYLAXIS
     Route: 048
  7. PREDNISONE [Suspect]
     Indication: ACUTE GRAFT VERSUS HOST DISEASE
     Route: 065
  8. PREDNISONE [Suspect]
     Route: 065

REACTIONS (1)
  - BRONCHOPULMONARY ASPERGILLOSIS [None]
